FAERS Safety Report 24116968 (Version 7)
Quarter: 2024Q3

REPORT INFORMATION
  Report Type: Spontaneous
  Country: US (occurrence: US)
  Receive Date: 20240722
  Receipt Date: 20240909
  Transmission Date: 20241016
  Serious: No
  Sender: ROCHE
  Company Number: US-ROCHE-10000027881

PATIENT
  Age: 72 Year
  Sex: Female

DRUGS (2)
  1. XOLAIR PFS [Suspect]
     Active Substance: OMALIZUMAB
     Indication: Asthma
     Dosage: PFS 300MG/2ML
     Route: 058
     Dates: start: 201308
  2. XOLAIR PFS [Suspect]
     Active Substance: OMALIZUMAB
     Dosage: 2 ,150MG/1ML
     Route: 058
     Dates: start: 202407

REACTIONS (2)
  - Exposure via skin contact [Unknown]
  - No adverse event [Unknown]
